FAERS Safety Report 6340671-6 (Version None)
Quarter: 2009Q3

REPORT INFORMATION
  Report Type: 
  Country: None (occurrence: None)
  Receive Date: 20090904
  Receipt Date: 20090825
  Transmission Date: 20100115
  Serious: Yes (Hospitalization)
  Sender: FDA-Public Use
  Company Number: DE-JNJFOC-20090807813

PATIENT
  Age: 28 Year
  Sex: Male
  Weight: 87 kg

DRUGS (2)
  1. REMICADE [Suspect]
     Route: 042
  2. REMICADE [Suspect]
     Indication: ANKYLOSING SPONDYLITIS
     Route: 042

REACTIONS (3)
  - COLITIS [None]
  - PELVIC VENOUS THROMBOSIS [None]
  - VENOUS THROMBOSIS [None]
